FAERS Safety Report 7563472-X (Version None)
Quarter: 2011Q2

REPORT INFORMATION
  Report Type: 
  Country: None (occurrence: None)
  Receive Date: 20110615
  Receipt Date: 20110612
  Transmission Date: 20111010
  Serious: Yes (Hospitalization)
  Sender: FDA-Public Use
  Company Number: A0930199A

PATIENT
  Age: 49 Year
  Sex: Female

DRUGS (8)
  1. CALCIUM SALT [Concomitant]
  2. DIPHENHYDRAMINE HCL [Concomitant]
  3. ASPIRIN + CAFFEINIE + PARACETAMOL POWDER (ACETAMINOPHEN + ASPIRIN +) [Suspect]
     Indication: PAIN
     Dosage: ORAL
     Route: 048
  4. CEPHALEXIN [Suspect]
     Indication: PRODUCT USED FOR UNKNOWN INDICATION
  5. OMEGA-3 MARINE TRIGLYCERIDE [Concomitant]
  6. VITAMIN D [Concomitant]
  7. ASCORBIC ACID [Concomitant]
  8. CYANOCOBALAMIN [Concomitant]

REACTIONS (11)
  - INFUSION SITE INFECTION [None]
  - PAIN [None]
  - GASTROINTESTINAL HAEMORRHAGE [None]
  - IMPAIRED WORK ABILITY [None]
  - BACK INJURY [None]
  - BALANCE DISORDER [None]
  - LOSS OF CONSCIOUSNESS [None]
  - PRURITUS [None]
  - BLOOD GLUCOSE INCREASED [None]
  - DIZZINESS [None]
  - THROMBOSIS [None]
